FAERS Safety Report 6793017-3 (Version None)
Quarter: 2010Q2

REPORT INFORMATION
  Report Type: 
  Country: None (occurrence: None)
  Receive Date: 20100624
  Receipt Date: 20081129
  Transmission Date: 20101027
  Serious: Yes (Other)
  Sender: FDA-Public Use
  Company Number: US-PFIZER INC-2008095089

PATIENT
  Sex: Male
  Weight: 17 kg

DRUGS (1)
  1. R-GENE [Suspect]
     Route: 042
     Dates: start: 20081105, end: 20081105

REACTIONS (1)
  - HYPERSENSITIVITY [None]
